APPROVED DRUG PRODUCT: TORISEL
Active Ingredient: TEMSIROLIMUS
Strength: 25MG/ML (25MG/ML)
Dosage Form/Route: SOLUTION;INTRAVENOUS
Application: N022088 | Product #001 | TE Code: AP
Applicant: PF PRISM CV
Approved: May 30, 2007 | RLD: Yes | RS: Yes | Type: RX

PATENTS:
Patent 8791097 | Expires: May 10, 2032
Patent 8791097 | Expires: May 10, 2032
Patent 8026276 | Expires: Jan 20, 2026
Patent 8026276*PED | Expires: Jul 20, 2026
Patent 8791097*PED | Expires: Nov 10, 2032